FAERS Safety Report 10198274 (Version 2)
Quarter: 2014Q2

REPORT INFORMATION
  Report Type: Spontaneous
  Country: US (occurrence: US)
  Receive Date: 20140527
  Receipt Date: 20140527
  Transmission Date: 20141212
  Serious: No
  Sender: FDA-Public Use
  Company Number: US-NOVEN-13US007926

PATIENT
  Sex: 0

DRUGS (1)
  1. DAYTRANA [Suspect]
     Indication: PRODUCT USED FOR UNKNOWN INDICATION
     Dosage: 30 MG FOR 9 HOURS
     Route: 062

REACTIONS (4)
  - Incorrect drug administration duration [Unknown]
  - Drug dose omission [Unknown]
  - Product quality issue [Recovered/Resolved]
  - No adverse event [None]
